FAERS Safety Report 4445990-6 (Version None)
Quarter: 2004Q3

REPORT INFORMATION
  Report Type: 
  Country: None (occurrence: None)
  Receive Date: 20040910
  Receipt Date: 20040901
  Transmission Date: 20050211
  Serious: Yes (Hospitalization)
  Sender: FDA-Public Use
  Company Number: FR-ROCHE-379328

PATIENT
  Sex: Male
  Weight: 0.1 kg

DRUGS (4)
  1. VALIUM [Suspect]
     Indication: DRUG USE FOR UNKNOWN INDICATION
  2. METHADONE HYDROCHLORIDE [Suspect]
     Indication: DRUG USE FOR UNKNOWN INDICATION
  3. LARGACTIL [Suspect]
     Indication: DRUG USE FOR UNKNOWN INDICATION
  4. COCAINE HYDROCHLORIDE [Concomitant]

REACTIONS (21)
  - BREECH PRESENTATION [None]
  - CAESAREAN SECTION [None]
  - CEREBRAL HAEMORRHAGE NEONATAL [None]
  - CONGENITAL ANOMALY [None]
  - CONGENITAL CHOROID PLEXUS CYST [None]
  - CONGENITAL NOSE MALFORMATION [None]
  - DRUG EXPOSURE DURING PREGNANCY [None]
  - EAR MALFORMATION [None]
  - FEEDING PROBLEM IN NEWBORN [None]
  - FOETAL ALCOHOL SYNDROME [None]
  - FOETAL HEART RATE DECREASED [None]
  - GROWTH RETARDATION [None]
  - HEART RATE DECREASED [None]
  - HYPOVENTILATION [None]
  - LIP DISORDER [None]
  - MATERNAL USE OF ILLICIT DRUGS [None]
  - MICROGENIA [None]
  - NEONATAL DISORDER [None]
  - PREMATURE BABY [None]
  - RESPIRATORY RATE DECREASED [None]
  - ULTRASOUND ANTENATAL SCREEN ABNORMAL [None]
